FAERS Safety Report 12605848 (Version 5)
Quarter: 2018Q2

REPORT INFORMATION
  Report Type: Report from Study
  Country: CA (occurrence: CA)
  Receive Date: 20160729
  Receipt Date: 20180508
  Transmission Date: 20180711
  Serious: Yes (Other)
  Sender: FDA-Public Use
  Company Number: PHHY2014CA065852

PATIENT
  Age: 32 Year
  Sex: Female

DRUGS (5)
  1. SANDOSTATIN [Suspect]
     Active Substance: OCTREOTIDE ACETATE
     Indication: ACROMEGALY
     Dosage: 100 UG, ONCE/SINGLE (TEST DOSE)
     Route: 058
     Dates: start: 20140428, end: 20140428
  2. SANDOSTATIN LAR DEPOT [Suspect]
     Active Substance: OCTREOTIDE ACETATE
     Indication: ACROMEGALY
     Dosage: 20 MG, QMO (EVERY 4 WEEKS)
     Route: 030
     Dates: start: 20140523
  3. SOMAVERT [Concomitant]
     Active Substance: PEGVISOMANT
     Indication: PRODUCT USED FOR UNKNOWN INDICATION
     Dosage: 20 MG, QW
     Route: 065
  4. SANDOSTATIN LAR DEPOT [Suspect]
     Active Substance: OCTREOTIDE ACETATE
     Dosage: 40 MG, QMO (ONCE A MONTH)
     Route: 030
     Dates: start: 201503
  5. SANDOSTATIN [Suspect]
     Active Substance: OCTREOTIDE ACETATE
     Dosage: 40 MG, QMO (EVERY 4 WEEKS)
     Route: 030
     Dates: start: 20140523

REACTIONS (24)
  - Vertigo [Recovering/Resolving]
  - White blood cell count decreased [Unknown]
  - Nasopharyngitis [Unknown]
  - Tremor [Recovering/Resolving]
  - Blood growth hormone increased [Unknown]
  - Productive cough [Unknown]
  - Rhinorrhoea [Unknown]
  - Headache [Unknown]
  - Malaria [Recovering/Resolving]
  - Body temperature decreased [Unknown]
  - Blood iron decreased [Unknown]
  - Chills [Recovering/Resolving]
  - Oropharyngeal pain [Unknown]
  - Diarrhoea [Recovered/Resolved]
  - Blood pressure diastolic increased [Unknown]
  - Anaemia [Recovering/Resolving]
  - Influenza [Recovered/Resolved]
  - Abdominal distension [Recovered/Resolved]
  - Fatigue [Not Recovered/Not Resolved]
  - Asthenia [Recovering/Resolving]
  - Drug ineffective [Unknown]
  - Sinus congestion [Unknown]
  - Blood pressure decreased [Unknown]
  - Dizziness [Recovered/Resolved]

NARRATIVE: CASE EVENT DATE: 20140523
